FAERS Safety Report 7681191-6 (Version None)
Quarter: 2011Q3

REPORT INFORMATION
  Report Type: 
  Country: None (occurrence: None)
  Receive Date: 20110812
  Receipt Date: 20110729
  Transmission Date: 20111222
  Serious: Yes (Hospitalization)
  Sender: FDA-Public Use
  Company Number: US-BAUSCH-2011BL005176

PATIENT
  Age: 67 Year
  Sex: Male

DRUGS (3)
  1. PYRIDOSTIGMINE BROMIDE [Concomitant]
     Indication: MYASTHENIA GRAVIS
  2. PREDNISOLONE [Suspect]
     Indication: MYASTHENIA GRAVIS
     Route: 065
  3. AZATHIOPRINE [Suspect]
     Indication: MYASTHENIA GRAVIS

REACTIONS (2)
  - MENINGITIS ASEPTIC [None]
  - STRONGYLOIDIASIS [None]
